FAERS Safety Report 5050576-9 (Version None)
Quarter: 2006Q3

REPORT INFORMATION
  Report Type: 
  Country: None (occurrence: None)
  Receive Date: 20060713
  Receipt Date: 20060630
  Transmission Date: 20061208
  Serious: Yes (Life-Threatening, Hospitalization)
  Sender: FDA-Public Use
  Company Number: FR-GLAXOSMITHKLINE-B0429515A

PATIENT
  Age: 71 Year
  Sex: Female

DRUGS (6)
  1. CLAMOXYL [Suspect]
     Indication: NASAL POLYPS
     Dosage: 1G SINGLE DOSE
     Route: 048
     Dates: start: 20060617, end: 20060617
  2. RHINOCORT [Suspect]
     Indication: NASAL POLYPS
     Dosage: 1PUFF SINGLE DOSE
     Route: 055
     Dates: start: 20060617, end: 20060617
  3. AVLOCARDYL [Concomitant]
     Dosage: 160MG PER DAY
     Route: 048
  4. AMLOR [Concomitant]
     Dosage: 5MG PER DAY
     Route: 065
  5. PAROXETINE HCL [Concomitant]
     Dosage: 20MG PER DAY
     Route: 065
  6. TRANXENE 10 [Concomitant]
     Dosage: 10MG PER DAY
     Route: 065

REACTIONS (9)
  - ANAPHYLACTIC SHOCK [None]
  - BLOOD CREATININE INCREASED [None]
  - DEHYDRATION [None]
  - DIARRHOEA [None]
  - HYPOTENSION [None]
  - MALAISE [None]
  - PRURITUS GENERALISED [None]
  - TINNITUS [None]
  - VISUAL DISTURBANCE [None]
